FAERS Safety Report 13912985 (Version 9)
Quarter: 2018Q2

REPORT INFORMATION
  Report Type: Spontaneous
  Country: US (occurrence: US)
  Receive Date: 20170828
  Receipt Date: 20180521
  Transmission Date: 20180711
  Serious: No
  Sender: FDA-Public Use
  Company Number: US-ACTELION-A-US2017-150072

PATIENT
  Age: 23 Year
  Sex: Female

DRUGS (2)
  1. OPSUMIT [Suspect]
     Active Substance: MACITENTAN
     Indication: PULMONARY ARTERIAL HYPERTENSION
     Dosage: 10 MG, QD
     Route: 048
     Dates: start: 20160307
  2. REMODULIN [Suspect]
     Active Substance: TREPROSTINIL
     Indication: PRODUCT USED FOR UNKNOWN INDICATION
     Route: 065

REACTIONS (19)
  - Rash [Unknown]
  - Oedema [Unknown]
  - Pain [Unknown]
  - Rash pruritic [Unknown]
  - Peripheral swelling [Unknown]
  - Epistaxis [Unknown]
  - Chest pain [Unknown]
  - Application site irritation [Unknown]
  - Visual impairment [Unknown]
  - Fluid retention [Unknown]
  - Urticaria [Unknown]
  - Dyspnoea [Recovered/Resolved]
  - Hyperhidrosis [Unknown]
  - Fatigue [Unknown]
  - Ageusia [Unknown]
  - Nasal congestion [Unknown]
  - Headache [Unknown]
  - Pruritus [Unknown]
  - Flushing [Unknown]

NARRATIVE: CASE EVENT DATE: 20170116
